FAERS Safety Report 8535902-8 (Version None)
Quarter: 2012Q3

REPORT INFORMATION
  Report Type: 
  Country: None (occurrence: None)
  Receive Date: 20120725
  Receipt Date: 20120719
  Transmission Date: 20120928
  Serious: Yes (Disabling)
  Sender: FDA-Public Use
  Company Number: PHHY2012JP024014

PATIENT
  Sex: Female

DRUGS (9)
  1. LOCOID [Concomitant]
     Indication: TINEA INFECTION
     Route: 061
     Dates: start: 20120117
  2. ASCORBIC ACID [Concomitant]
  3. TOUKISHAKUYAKUSAN [Concomitant]
     Route: 048
  4. RAMITECT [Concomitant]
     Indication: TINEA INFECTION
     Dosage: UNK
     Route: 048
     Dates: start: 20120117
  5. PROTOPIC [Concomitant]
     Route: 061
  6. ALEROFF [Concomitant]
     Indication: TINEA INFECTION
     Route: 048
     Dates: start: 20120117
  7. KEISHIBUKURYOUGAN [Concomitant]
  8. NEORAL [Suspect]
     Dosage: 75 MG IN THE MORNING AND 50 MG IN THE EVENING
     Route: 048
     Dates: start: 20111101, end: 20111130
  9. FULMETA [Concomitant]
     Indication: TINEA INFECTION
     Route: 061
     Dates: start: 20120117

REACTIONS (4)
  - RASH MACULAR [None]
  - PRURITUS [None]
  - MELANODERMIA [None]
  - LEUKODERMA [None]
